FAERS Safety Report 9335595 (Version 1)
Quarter: 2013Q2

REPORT INFORMATION
  Report Type: Spontaneous
  Country: TR (occurrence: TR)
  Receive Date: 20130605
  Receipt Date: 20130605
  Transmission Date: 20140414
  Serious: Yes (Other)
  Sender: FDA-Public Use
  Company Number: TR-ACTAVIS-2013-09506

PATIENT
  Age: 14 Year
  Sex: Female

DRUGS (11)
  1. CYTARABINE [Suspect]
     Indication: ACUTE MYELOID LEUKAEMIA
     Dosage: 3000 MG/M2 INFUSION ON DAYS 1 TO 3, AT 4 WEEKS
     Route: 042
  2. CYTARABINE [Suspect]
     Dosage: 1000MG/M2 INFUSION ON DAYS 1 TO 3, AT 4 WEEKS INTERVAL
     Route: 042
  3. CYTARABINE [Suspect]
     Dosage: 500MG/M2 ON DAYS 1AND 4, AT INTERVAL OF 4 WEEKS
     Route: 042
  4. CYTARABINE [Suspect]
     Dosage: 100MG/M2 INFUSION ON DAYS 1 TO 3, AT INTERVALS OF 4 WEEKS
     Route: 042
  5. CYTARABINE [Suspect]
     Dosage: 2 X 100 MG/M2/12 H INFUSION ON DAYS 3 TO 7
     Route: 042
  6. CYTARABINE [Suspect]
     Dosage: 100MG/M2 INFUSION ON DAYS 1 AND 2
     Route: 042
  7. ETOPOSIDE (UNKNOWN) [Suspect]
     Indication: ACUTE MYELOID LEUKAEMIA
     Dosage: 10 MG/M2 INTRAVENOUSLY ON DAYS 2 TO 5, AT 4 WEEKS
     Route: 042
  8. ETOPOSIDE (UNKNOWN) [Suspect]
     Dosage: 150MG/M2 INTRAVENOUSLY ON DAYS 6 TO 8
     Route: 042
  9. IDARUBICIN [Concomitant]
     Indication: ACUTE MYELOID LEUKAEMIA
     Dosage: 7 MG/M2 INTRAVENOUSLY ON DAYS 3 TO 5, AT 4 WEEKS
     Route: 042
  10. IDARUBICIN [Concomitant]
     Dosage: 12MG/M2 ON DAYS 3, 5, AND 7
     Route: 065
  11. MITOXANTRONE [Concomitant]
     Indication: ACUTE MYELOID LEUKAEMIA
     Dosage: 10 MG/M2 INTRAVENOUSLY ON DAYS 3 AND 4, AT INTERVALS OF 4 WEEKS
     Route: 042

REACTIONS (1)
  - Palmar-plantar erythrodysaesthesia syndrome [Recovered/Resolved]
